FAERS Safety Report 9373778 (Version 1)
Quarter: 2013Q2

REPORT INFORMATION
  Report Type: Spontaneous
  Country: US (occurrence: US)
  Receive Date: 20130628
  Receipt Date: 20130628
  Transmission Date: 20140414
  Serious: Yes (Hospitalization)
  Sender: FDA-Public Use
  Company Number: US-AMGEN-USASP2013044883

PATIENT
  Age: 39 Year
  Sex: Female
  Weight: 68.03 kg

DRUGS (4)
  1. ENBREL [Suspect]
     Indication: PRODUCT USED FOR UNKNOWN INDICATION
     Dosage: 50 MG, QWK
     Route: 058
  2. CENTRUM                            /02217401/ [Concomitant]
     Dosage: UNK
  3. FOLIC ACID [Concomitant]
     Dosage: 1 MG, UNK
  4. B COMPLETE                         /06817001/ [Concomitant]
     Dosage: UNK

REACTIONS (1)
  - Pneumonia [Unknown]
